FAERS Safety Report 12177473 (Version 3)
Quarter: 2016Q2

REPORT INFORMATION
  Report Type: Spontaneous
  Country: CH (occurrence: CH)
  Receive Date: 20160314
  Receipt Date: 20160524
  Transmission Date: 20160815
  Serious: Yes (Hospitalization)
  Sender: FDA-Public Use
  Company Number: CH-TEVA-640936ISR

PATIENT
  Age: 83 Year
  Sex: Female

DRUGS (9)
  1. DICLOFENAC [Suspect]
     Active Substance: DICLOFENAC
     Indication: BACK PAIN
     Dosage: UNSPECIFIED STRENGTH, DOSE GIVEN IN TOTAL, DURATION OF THERAPY: MINUTES
     Route: 030
     Dates: start: 20160205, end: 20160205
  2. ATORVASTATIN [Concomitant]
     Active Substance: ATORVASTATIN
     Dosage: UNSPECIFIED STRENGTH, DOSAGE REGIMEN REPORTED AS 0.5 PER 1 DAY
     Route: 048
  3. ELTROXIN [Concomitant]
     Active Substance: LEVOTHYROXINE
     Dosage: .1 MILLIGRAM DAILY; 100 MCG STRENGTH
     Route: 048
  4. ASPIRIN CARDIO [Interacting]
     Active Substance: ASPIRIN
     Route: 048
     Dates: start: 2015, end: 201603
  5. NOVALGIN [Concomitant]
     Active Substance: METAMIZOLE SODIUM
     Route: 065
     Dates: end: 201602
  6. PREDNISON [Interacting]
     Active Substance: PREDNISONE
     Indication: BACK PAIN
     Dosage: UNSPECIFIED STRENGTH, DOSE GIVEN IN TOTAL, DURATION OF THERAPY: MINUTES
     Route: 030
     Dates: start: 20160205, end: 20160205
  7. TEBOKAN [Interacting]
     Active Substance: GINKGO
     Route: 065
     Dates: start: 2015, end: 201603
  8. INDAPAMID [Concomitant]
     Active Substance: INDAPAMIDE
     Dosage: UNSPECIFIED STRENGTH, STOP DUE TO HYPOKALEMIA OF 3.0 MMOL/L, START OF TREATMENT, DOSE UNKNOWN
     Route: 048
     Dates: end: 20160207
  9. COVERSUM COMBI [Concomitant]
     Active Substance: INDAPAMIDE
     Dosage: 5 MILLIGRAM DAILY; UNSPECIFIED STRENGTH
     Route: 048

REACTIONS (4)
  - Upper gastrointestinal haemorrhage [Recovered/Resolved with Sequelae]
  - Gastric ulcer [Recovering/Resolving]
  - Nausea [Unknown]
  - Drug interaction [Recovering/Resolving]

NARRATIVE: CASE EVENT DATE: 20160120
